FAERS Safety Report 6962742-3 (Version None)
Quarter: 2010Q3

REPORT INFORMATION
  Report Type: 
  Country: None (occurrence: None)
  Receive Date: 20100902
  Receipt Date: 20100831
  Transmission Date: 20110219
  Serious: Yes (Other)
  Sender: FDA-Public Use
  Company Number: US-BRISTOL-MYERS SQUIBB COMPANY-15226517

PATIENT
  Age: 46 Year
  Sex: Male
  Weight: 58 kg

DRUGS (6)
  1. CARBOPLATIN [Suspect]
     Indication: NON-SMALL CELL LUNG CANCER
     Route: 042
     Dates: start: 20100104, end: 20100315
  2. PACLITAXEL [Suspect]
     Indication: NON-SMALL CELL LUNG CANCER
     Route: 042
     Dates: start: 20100104, end: 20100315
  3. BEVACIZUMAB [Suspect]
     Indication: NON-SMALL CELL LUNG CANCER
     Route: 042
     Dates: start: 20100104, end: 20100405
  4. METHADONE HCL [Concomitant]
  5. HYDROMORPHONE [Concomitant]
     Dates: start: 20091230
  6. VICODIN [Concomitant]
     Dates: start: 20091221

REACTIONS (1)
  - HEPATITIS C [None]
